FAERS Safety Report 9859143 (Version 2)
Quarter: 2014Q1

REPORT INFORMATION
  Report Type: Spontaneous
  Country: AT (occurrence: AT)
  Receive Date: 20140131
  Receipt Date: 20140131
  Transmission Date: 20141002
  Serious: Yes (Hospitalization, Other)
  Sender: FDA-Public Use
  Company Number: AT-JNJFOC-20131206367

PATIENT
  Age: 64 Year
  Sex: Female
  Weight: 70 kg

DRUGS (10)
  1. XARELTO [Suspect]
     Indication: THROMBOSIS PROPHYLAXIS
     Route: 048
     Dates: end: 20140105
  2. XARELTO [Suspect]
     Indication: THROMBOSIS PROPHYLAXIS
     Route: 048
     Dates: start: 20131127
  3. XARELTO [Suspect]
     Indication: KNEE ARTHROPLASTY
     Route: 048
     Dates: start: 20131127
  4. XARELTO [Suspect]
     Indication: KNEE ARTHROPLASTY
     Route: 048
     Dates: end: 20140105
  5. ACETYLSALICYLIC ACID [Suspect]
     Indication: PRODUCT USED FOR UNKNOWN INDICATION
     Route: 065
  6. NAPROXEN [Concomitant]
     Route: 065
     Dates: start: 20131127, end: 20131209
  7. CARVEDILOL [Concomitant]
     Route: 065
  8. ACETAN [Concomitant]
     Route: 065
  9. THYREX [Concomitant]
     Route: 065
  10. CIMETIDINE [Concomitant]
     Route: 065

REACTIONS (5)
  - Melaena [Recovered/Resolved]
  - Upper gastrointestinal haemorrhage [Unknown]
  - Gastric ulcer [Recovering/Resolving]
  - Diverticulum intestinal [Recovering/Resolving]
  - Diverticulum intestinal [Unknown]
